FAERS Safety Report 17003759 (Version 1)
Quarter: 2019Q4

REPORT INFORMATION
  Report Type: Spontaneous
  Country: CN (occurrence: CN)
  Receive Date: 20191107
  Receipt Date: 20191107
  Transmission Date: 20200122
  Serious: Yes (Other)
  Sender: FDA-Public Use
  Company Number: CN-009507513-1911CHN000374

PATIENT
  Age: 70 Year
  Sex: Male

DRUGS (4)
  1. SODIUM CHLORIDE. [Concomitant]
     Active Substance: SODIUM CHLORIDE
     Dosage: 100 MILLILITER, BID (AS MENSTRUUM)
     Route: 041
     Dates: start: 20191022, end: 20191024
  2. SULPERAZONE [Suspect]
     Active Substance: CEFOPERAZONE SODIUM\SULBACTAM SODIUM
     Indication: PNEUMONIA
     Dosage: 2 GRAM, BID
     Route: 041
     Dates: start: 20191022, end: 20191024
  3. SODIUM BICARBONATE. [Concomitant]
     Active Substance: SODIUM BICARBONATE
     Indication: RHABDOMYOLYSIS
     Dosage: 1 GRAM, TID
     Route: 048
     Dates: start: 20191018, end: 20191026
  4. PROSCAR [Suspect]
     Active Substance: FINASTERIDE
     Indication: BENIGN PROSTATIC HYPERPLASIA
     Dosage: 5 MILLIGRAM, QD
     Route: 048
     Dates: start: 20191018, end: 20191030

REACTIONS (3)
  - Papule [Recovering/Resolving]
  - Rash pruritic [Recovering/Resolving]
  - Rash erythematous [Recovering/Resolving]

NARRATIVE: CASE EVENT DATE: 20191024
